FAERS Safety Report 20851521 (Version 1)
Quarter: 2022Q2

REPORT INFORMATION
  Report Type: Report from Study
  Country: US (occurrence: US)
  Receive Date: 20220520
  Receipt Date: 20220520
  Transmission Date: 20220721
  Serious: Yes (Death, Other)
  Sender: FDA-Public Use
  Company Number: US-SNT-000279

PATIENT
  Age: 62 Year
  Sex: Male

DRUGS (1)
  1. POSACONAZOLE [Suspect]
     Active Substance: POSACONAZOLE
     Indication: Antifungal prophylaxis
     Dosage: 300 MG, DELAYED RELEASE TABLET
     Route: 065

REACTIONS (6)
  - Adenovirus infection [Fatal]
  - Intentional product misuse [Unknown]
  - Product use issue [Unknown]
  - Pneumonia bacterial [Fatal]
  - Lung transplant rejection [Fatal]
  - Atrial fibrillation [Fatal]
